FAERS Safety Report 10925683 (Version 1)
Quarter: 2015Q1

REPORT INFORMATION
  Report Type: Spontaneous
  Country: US (occurrence: None)
  Receive Date: 20150316
  Receipt Date: 20150316
  Transmission Date: 20150721
  Serious: Yes (Hospitalization)
  Sender: FDA-Public Use
  Company Number: None

PATIENT
  Age: 13 Year
  Sex: Female
  Weight: 71.1 kg

DRUGS (4)
  1. VINCRISTINE SULFATE. [Suspect]
     Active Substance: VINCRISTINE SULFATE
     Dosage: TOTAL DOSE ADMINISTERED 8 MG
     Dates: end: 20150305
  2. PREDNISONE. [Suspect]
     Active Substance: PREDNISONE
     Dosage: TOTAL DOSE ADMINISTERED 3190 MG
     Dates: end: 20150307
  3. ONCASPAR [Suspect]
     Active Substance: PEGASPARGASE
     Dosage: TOTAL DOSE ADMINISTERED 4522.5 IU
     Dates: end: 20150215
  4. DAUNORUBICIN [Suspect]
     Active Substance: DAUNORUBICIN
     Dosage: TOTAL DOSE ADMINISTERED 181 MG
     Dates: end: 20150305

REACTIONS (23)
  - Tachypnoea [None]
  - Tumour lysis syndrome [None]
  - Hepatic lesion [None]
  - Anaemia [None]
  - Malaise [None]
  - Hyperbilirubinaemia [None]
  - Disorientation [None]
  - Chest discomfort [None]
  - Thrombocytopenia [None]
  - Systemic inflammatory response syndrome [None]
  - Somnolence [None]
  - Leukocytosis [None]
  - Neutropenia [None]
  - Bacillus test positive [None]
  - Pancreatitis acute [None]
  - Dialysis [None]
  - Pyrexia [None]
  - Blood pressure decreased [None]
  - Dyspnoea [None]
  - Tachycardia [None]
  - Abdominal pain [None]
  - Transaminases increased [None]
  - Fatigue [None]

NARRATIVE: CASE EVENT DATE: 20150307
